FAERS Safety Report 16481248 (Version 1)
Quarter: 2019Q2

REPORT INFORMATION
  Report Type: Spontaneous
  Country: IT (occurrence: IT)
  Receive Date: 20190626
  Receipt Date: 20190626
  Transmission Date: 20190711
  Serious: Yes (Other)
  Sender: FDA-Public Use
  Company Number: IT-BAXTER-2019BAX012439

PATIENT
  Age: 74 Year
  Sex: Male
  Weight: 88 kg

DRUGS (4)
  1. VINCRISTINE [Suspect]
     Active Substance: VINCRISTINE
     Indication: RHABDOMYOSARCOMA
     Route: 042
     Dates: start: 20190306, end: 20190306
  2. ACCOFIL [Concomitant]
     Active Substance: FILGRASTIM
     Indication: COLONY STIMULATING FACTOR THERAPY
     Dosage: 30 MU/0.5 ML SOLUTION FOR INJECTION OR INFUSION IN PRE-FILLED
     Route: 058
     Dates: start: 20190308, end: 20190313
  3. ENDOXAN BAXTER [Suspect]
     Active Substance: CYCLOPHOSPHAMIDE
     Indication: RHABDOMYOSARCOMA
     Route: 042
     Dates: start: 20190306, end: 20190306
  4. DOXORUBICIN HYDROCHLORIDE. [Suspect]
     Active Substance: DOXORUBICIN HYDROCHLORIDE
     Indication: RHABDOMYOSARCOMA
     Route: 065
     Dates: start: 20190306, end: 20190306

REACTIONS (5)
  - Dysphagia [Recovering/Resolving]
  - Thrombocytopenia [Recovering/Resolving]
  - Mucosal inflammation [Recovering/Resolving]
  - Gingival hypertrophy [Recovering/Resolving]
  - Neutropenia [Recovering/Resolving]

NARRATIVE: CASE EVENT DATE: 20190314
